FAERS Safety Report 10057942 (Version 1)
Quarter: 2014Q2

REPORT INFORMATION
  Report Type: Report from Study
  Country: US (occurrence: US)
  Receive Date: 20140404
  Receipt Date: 20140404
  Transmission Date: 20141212
  Serious: Yes (Hospitalization, Other)
  Sender: FDA-Public Use
  Company Number: US-ROCHE-1372824

PATIENT
  Sex: 0

DRUGS (5)
  1. MYCOPHENOLATE MOFETIL [Suspect]
     Indication: PROPHYLAXIS AGAINST GRAFT VERSUS HOST DISEASE
     Dosage: ON DAY 0 THROUGH DAY 28
     Route: 042
  2. MYCOPHENOLATE MOFETIL [Suspect]
     Dosage: ON DAY 0 THROUGH DAY 28
     Route: 048
  3. TACROLIMUS [Suspect]
     Indication: PROPHYLAXIS AGAINST GRAFT VERSUS HOST DISEASE
     Dosage: 0.03 MG/KG A DAY, TITRATED TO A GOAL LEVEL OF 8-12 NG/ML, INITIATED ON DAY -3
     Route: 042
  4. VORINOSTAT [Suspect]
     Indication: PROPHYLAXIS AGAINST GRAFT VERSUS HOST DISEASE
     Dosage: 10 DAYS BEFORE STEM CELL INFUSION COMTINUED TILL DAY 100
     Route: 048
  5. VORINOSTAT [Suspect]
     Dosage: 10 DAYS BEFORE STEM CELL INFUSION COMTINUED TILL DAY 100
     Route: 048

REACTIONS (25)
  - Urinary tract infection [Unknown]
  - Sepsis [Unknown]
  - Upper respiratory tract infection [Unknown]
  - Cystitis [Unknown]
  - Hypercalcaemia [Unknown]
  - Bacteraemia [Unknown]
  - Decreased appetite [Unknown]
  - Diarrhoea [Unknown]
  - Graft versus host disease [Unknown]
  - Thrombosis [Unknown]
  - Colitis [Unknown]
  - Viraemia [Unknown]
  - Hepatic enzyme increased [Unknown]
  - Engraftment syndrome [Unknown]
  - Hyperbilirubinaemia [Unknown]
  - Hypocalcaemia [Unknown]
  - Hypokalaemia [Unknown]
  - Hyponatraemia [Unknown]
  - Hypophosphataemia [Unknown]
  - Hypotension [Unknown]
  - Perirectal abscess [Unknown]
  - Sinusitis [Unknown]
  - Thrombocytopenia [Unknown]
  - Hyperkalaemia [Unknown]
  - Embolism [Unknown]
